FAERS Safety Report 8829817 (Version 1)
Quarter: 2012Q4

REPORT INFORMATION
  Report Type: Spontaneous
  Country: US (occurrence: None)
  Receive Date: 20121005
  Receipt Date: 20121005
  Transmission Date: 20130627
  Serious: Yes (Hospitalization, Other)
  Sender: FDA-Public Use
  Company Number: None

PATIENT
  Age: 41 Year
  Sex: Female

DRUGS (1)
  1. MONTELUKAST [Suspect]
     Indication: ASTHMA
     Dates: start: 20120809, end: 20120910

REACTIONS (2)
  - Asthma [None]
  - Product substitution issue [None]
